FAERS Safety Report 4736434-5 (Version None)
Quarter: 2005Q3

REPORT INFORMATION
  Report Type: 
  Country: None (occurrence: None)
  Receive Date: 20050804
  Receipt Date: 20050719
  Transmission Date: 20060218
  Serious: Yes (Hospitalization, Other)
  Sender: FDA-Public Use
  Company Number: A-US2003-02234

PATIENT
  Age: 68 Year
  Sex: Female
  Weight: 84.8 kg

DRUGS (24)
  1. TRACLEER [Suspect]
     Indication: PULMONARY HYPERTENSION
     Dosage: SEE IMAGE
     Route: 048
     Dates: start: 20021129, end: 20021201
  2. TRACLEER [Suspect]
     Indication: PULMONARY HYPERTENSION
     Dosage: SEE IMAGE
     Route: 048
     Dates: start: 20020130, end: 20050624
  3. TRACLEER [Suspect]
     Indication: PULMONARY HYPERTENSION
     Dosage: SEE IMAGE
     Route: 048
     Dates: start: 20050707
  4. LUNESTA [Suspect]
     Dates: start: 20050620, end: 20050624
  5. SYNTHROID [Concomitant]
  6. ALTACE [Concomitant]
  7. EFFEXOR [Concomitant]
  8. DEMADEX [Concomitant]
  9. SALAGEN [Concomitant]
  10. ESTRADIOL [Concomitant]
  11. AMBIEN [Concomitant]
  12. SEREVENT [Concomitant]
  13. AZATHIOPRINE [Concomitant]
  14. COUMADIN [Concomitant]
  15. NORVASC [Concomitant]
  16. ROBINUL FORTE (GLYCOPYRRONIUM BROMIDE) [Concomitant]
  17. FLONASE [Concomitant]
  18. VERAPAMIL [Concomitant]
  19. CLARITIN [Concomitant]
  20. AMITRIPTYLINE HCL [Concomitant]
  21. SPIRONOLACTONE [Concomitant]
  22. DARVOCET-N 100 [Concomitant]
  23. CELLCEPT [Concomitant]
  24. ATENOLOL [Concomitant]

REACTIONS (16)
  - ABDOMINAL PAIN UPPER [None]
  - ALANINE AMINOTRANSFERASE INCREASED [None]
  - ASPARTATE AMINOTRANSFERASE INCREASED [None]
  - BLOOD ALKALINE PHOSPHATASE INCREASED [None]
  - COMPUTERISED TOMOGRAM ABNORMAL [None]
  - DIARRHOEA [None]
  - DIZZINESS [None]
  - DRUG INTERACTION [None]
  - DYSPNOEA [None]
  - DYSPNOEA EXERTIONAL [None]
  - LUNG INFILTRATION [None]
  - NAUSEA [None]
  - PALPITATIONS [None]
  - PULMONARY HYPERTENSION [None]
  - PYREXIA [None]
  - VIRAL INFECTION [None]
